FAERS Safety Report 23364255 (Version 2)
Quarter: 2024Q1

REPORT INFORMATION
  Report Type: Spontaneous
  Country: EG (occurrence: EG)
  Receive Date: 20240104
  Receipt Date: 20240121
  Transmission Date: 20240410
  Serious: Yes (Other)
  Sender: FDA-Public Use
  Company Number: EG-NOVOPROD-1156509

PATIENT
  Age: 647 Month
  Sex: Female
  Weight: 88 kg

DRUGS (4)
  1. INSULIN ASPART [Suspect]
     Active Substance: INSULIN ASPART
     Indication: Diabetes mellitus
     Dosage: 50 IU, QD (36U AT MORNING AND 14U AT NIGHT)
     Route: 058
  2. LIPOMEDIZEN [Concomitant]
     Indication: Blood triglycerides abnormal
     Dosage: 1 TAB AT NIGHT
     Route: 048
  3. GLUCOPHAGE [Concomitant]
     Active Substance: METFORMIN HYDROCHLORIDE
     Indication: Diabetes mellitus
     Dosage: 1 TAB AT AFTERNOON
     Route: 048
  4. CONCOR 5 PLUS [Concomitant]
     Indication: Hypertension
     Dosage: 1 TAB/DAY

REACTIONS (4)
  - Eye operation [Recovered/Resolved]
  - Eye haemorrhage [Recovered/Resolved]
  - Intraocular lens implant [Recovered/Resolved]
  - Cataract [Recovered/Resolved]

NARRATIVE: CASE EVENT DATE: 20221001
